FAERS Safety Report 6119708-5 (Version None)
Quarter: 2009Q1

REPORT INFORMATION
  Report Type: 
  Country: None (occurrence: None)
  Receive Date: 20090316
  Receipt Date: 20090304
  Transmission Date: 20090719
  Serious: Yes (Disabling)
  Sender: FDA-Public Use
  Company Number: GB-PFIZER INC-2009158024

PATIENT

DRUGS (2)
  1. PHENYTOIN SODIUM CAP [Suspect]
     Indication: EPILEPSY
     Dosage: 400 MG, 1X/DAY
     Route: 048
     Dates: start: 19980101
  2. NORDETTE-28 [Concomitant]
     Dosage: TWO DAILY
     Route: 048
     Dates: start: 20040101

REACTIONS (2)
  - MIGRAINE [None]
  - NAUSEA [None]
